FAERS Safety Report 7667986-3 (Version None)
Quarter: 2011Q3

REPORT INFORMATION
  Report Type: 
  Country: None (occurrence: None)
  Receive Date: 20110808
  Receipt Date: 20110728
  Transmission Date: 20111222
  Serious: Yes (Hospitalization)
  Sender: FDA-Public Use
  Company Number: FR-BRISTOL-MYERS SQUIBB COMPANY-15937659

PATIENT
  Age: 71 Year
  Sex: Male

DRUGS (6)
  1. LOPRESSOR [Suspect]
     Indication: HYPERTENSION
     Dosage: 200MG FILM COATED PROLONGED RELEASE SCORED TABLET
     Route: 048
     Dates: end: 20101201
  2. LANTUS [Concomitant]
     Dosage: AT NIGHT
  3. REPAGLINIDE [Concomitant]
     Dosage: 1DF=1TABLET
  4. GLUCOPHAGE [Concomitant]
     Dosage: 1 TABLET IN THE EVNG
  5. LYRICA [Concomitant]
     Dosage: 1 INTAKE IN THE MRNG AND IN THE EVNG
  6. IRBESARTAN AND HYDROCHLOROTHIAZIDE [Suspect]
     Indication: HYPERTENSION
     Route: 048
     Dates: end: 20101201

REACTIONS (3)
  - LOSS OF CONSCIOUSNESS [None]
  - SYNCOPE [None]
  - URINARY INCONTINENCE [None]
